FAERS Safety Report 14896649 (Version 42)
Quarter: 2020Q3

REPORT INFORMATION
  Report Type: Spontaneous
  Country: FR (occurrence: FR)
  Receive Date: 20180515
  Receipt Date: 20190918
  Transmission Date: 20201104
  Serious: Yes (Other)
  Sender: FDA-Public Use
  Company Number: FR-PFIZER INC-2018195935

PATIENT
  Age: 1 Day
  Sex: Male
  Weight: 1.89 kg

DRUGS (96)
  1. RAMIPRIL. [Suspect]
     Active Substance: RAMIPRIL
     Dosage: 2.5 UNK
     Route: 064
     Dates: start: 20170224
  2. LOXEN L P [Suspect]
     Active Substance: NICARDIPINE HYDROCHLORIDE
     Indication: HYPERTENSION
     Dosage: 50 MG, UNK (50 MG, 50MG FORME LP X2/J)
     Route: 064
     Dates: start: 20170313, end: 20180405
  3. ARIPIPRAZOLE. [Suspect]
     Active Substance: ARIPIPRAZOLE
     Dosage: UNK
     Route: 064
  4. TRAMADOL HCL [Suspect]
     Active Substance: TRAMADOL HYDROCHLORIDE
     Indication: DIABETIC NEUROPATHY
     Dosage: 50 MG, DAILY
     Route: 064
     Dates: start: 20160930, end: 20170306
  5. LANTUS [Suspect]
     Active Substance: INSULIN GLARGINE
     Indication: TYPE 2 DIABETES MELLITUS
     Dosage: 20 IU, DAILY
     Route: 064
     Dates: start: 20170224, end: 20170914
  6. CHLORHYDRATE DE PROPRANOLOL [Suspect]
     Active Substance: PROPRANOLOL HYDROCHLORIDE
     Dosage: 25 MG, 1X/DAY
     Route: 064
     Dates: start: 20170720
  7. DIFFU?K [Suspect]
     Active Substance: POTASSIUM CHLORIDE
     Indication: HYPOKALAEMIA
     Dosage: 3600 MG, 1X/DAY (3600 MG, QD, 1200 MG, QD (1200 MG, QD (2 TO 3 TIMES PER DAY))
     Route: 064
     Dates: start: 20170804
  8. ACIDE FOLIQUE [Suspect]
     Active Substance: FOLIC ACID
     Indication: NORMOCHROMIC NORMOCYTIC ANAEMIA
     Dosage: 5 MG, 1X/DAY
     Route: 064
     Dates: start: 20170313
  9. METHYLDOPA. [Suspect]
     Active Substance: METHYLDOPA
     Indication: HYPERTENSION
     Dosage: 15000 MG, 1X/DAY
     Route: 064
     Dates: start: 20170720
  10. AMITRIPTYLINE HYDROCHLORIDE. [Suspect]
     Active Substance: AMITRIPTYLINE HYDROCHLORIDE
     Indication: DIABETIC NEUROPATHY
     Dosage: 2 DF, DAILY
     Route: 064
     Dates: start: 20160930, end: 20170914
  11. AMOXICILLIN. [Suspect]
     Active Substance: AMOXICILLIN
     Dosage: 3 G, 1X/DAY
     Route: 064
     Dates: start: 20170804, end: 20180811
  12. AMOXICILLIN. [Suspect]
     Active Substance: AMOXICILLIN
     Dosage: 1 MG, 1X/DAY
     Dates: start: 201708, end: 20180811
  13. LABETALOL HYDROCHLORIDE. [Suspect]
     Active Substance: LABETALOL HYDROCHLORIDE
     Indication: HYPERTENSION
     Dosage: 80 MG, DAILY
     Route: 064
     Dates: start: 20170516, end: 20170914
  14. LARGACTIL [CHLORPROMAZINE] [Suspect]
     Active Substance: CHLORPROMAZINE
     Indication: BIPOLAR I DISORDER
     Dosage: 25 MG, DAILY
     Route: 064
     Dates: start: 20170720
  15. PROPRANOLOL HYDROCHLORIDE. [Suspect]
     Active Substance: PROPRANOLOL HYDROCHLORIDE
     Dosage: 25 MG, DAILY
     Route: 064
     Dates: start: 20170720
  16. GABAPENTIN. [Suspect]
     Active Substance: GABAPENTIN
     Indication: DIABETIC NEUROPATHY
     Dosage: 800 MG, QD
     Route: 064
     Dates: start: 20160930
  17. GABAPENTIN. [Suspect]
     Active Substance: GABAPENTIN
     Dosage: UNK
     Route: 064
  18. GABAPENTIN. [Suspect]
     Active Substance: GABAPENTIN
     Dosage: 80 MG, QD
     Route: 064
     Dates: start: 20160930
  19. METHYLDOPA MSD [Suspect]
     Active Substance: METHYLDOPA
     Indication: HYPERTENSION
     Dosage: 15000 MG, QD
     Route: 064
     Dates: start: 20170720
  20. LOXEN L P [Suspect]
     Active Substance: NICARDIPINE HYDROCHLORIDE
     Dosage: 50 MG, 2X/DAY
     Route: 064
     Dates: start: 20170405, end: 20170914
  21. LASIX [Suspect]
     Active Substance: FUROSEMIDE
     Dosage: 40 MG, UNK (SCORED TABLET)
     Route: 064
     Dates: start: 20170516
  22. LEVEMIR [Suspect]
     Active Substance: INSULIN DETEMIR
     Indication: TYPE 2 DIABETES MELLITUS
     Dosage: 10 IU, DAILY
     Route: 064
     Dates: start: 20160930, end: 20170224
  23. LEVEMIR [Suspect]
     Active Substance: INSULIN DETEMIR
     Dosage: 10 IU, DAILY
     Route: 064
     Dates: start: 20160930, end: 20170224
  24. HUMALOG [Suspect]
     Active Substance: INSULIN LISPRO
     Dosage: 7 UG/M2, DAILY
     Route: 064
     Dates: start: 20170224
  25. TRAMADOL HYDROCHLORIDE. [Suspect]
     Active Substance: TRAMADOL HYDROCHLORIDE
     Indication: DIABETIC NEUROPATHY
     Dosage: 100 MG, 1X/DAY
     Route: 064
     Dates: start: 20160930, end: 20170306
  26. INSULIN LISPRO [Suspect]
     Active Substance: INSULIN LISPRO
     Indication: TYPE 2 DIABETES MELLITUS
     Dosage: 21 UG/M2, DAILY
     Route: 064
     Dates: start: 20170224, end: 20170224
  27. INSULIN [Suspect]
     Active Substance: INSULIN NOS
     Indication: TYPE 2 DIABETES MELLITUS
     Dosage: UNK
     Route: 064
     Dates: start: 20161230, end: 20180224
  28. METFORMIN HYDROCHLORIDE. [Suspect]
     Active Substance: METFORMIN HYDROCHLORIDE
     Dosage: 850 MG, DAILY
     Route: 064
     Dates: start: 20170224
  29. LOXEN [LOXOPROFEN SODIUM] [Suspect]
     Active Substance: LOXOPROFEN SODIUM
     Dosage: UNK
     Route: 064
     Dates: start: 20170313, end: 20170405
  30. LARGACTIL [CHLORPROMAZINE] [Suspect]
     Active Substance: CHLORPROMAZINE
     Dosage: 25 MG, DAILY (QD)
     Route: 064
     Dates: start: 20170720
  31. NICARDIPINE [Suspect]
     Active Substance: NICARDIPINE
     Dosage: 1 DF, UNK
     Route: 064
     Dates: start: 20170313, end: 20180405
  32. NICARDIPINE [Suspect]
     Active Substance: NICARDIPINE
     Dosage: 100 MG, QD
     Route: 064
     Dates: start: 20180405
  33. LABETALOL HCL [Suspect]
     Active Substance: LABETALOL HYDROCHLORIDE
     Indication: HYPERTENSION
     Dosage: 80 MG, DAILY
     Route: 064
     Dates: start: 20170516, end: 20170914
  34. LASIX [Suspect]
     Active Substance: FUROSEMIDE
     Dosage: UNK
     Route: 064
  35. TARDYFERON [Suspect]
     Active Substance: FERROUS SULFATE
     Dosage: UNK
     Route: 064
  36. LARGACTIL LEIRAS [CHLORPROMAZINE HYDROCHLORIDE] [Suspect]
     Active Substance: CHLORPROMAZINE HYDROCHLORIDE
     Dosage: 0.5 DF, UNK
     Route: 064
  37. LOXEN (NICARDIPINE HYDROCHLORIDE) [Suspect]
     Active Substance: NICARDIPINE HYDROCHLORIDE
     Indication: HYPERTENSION
     Dosage: UNK (50MG FORME LP X2/J)
     Route: 064
     Dates: start: 20170313, end: 20170405
  38. LOXEN (NICARDIPINE HYDROCHLORIDE) [Suspect]
     Active Substance: NICARDIPINE HYDROCHLORIDE
     Dosage: UNK
     Route: 065
  39. FOLINIC ACID [Suspect]
     Active Substance: LEUCOVORIN
     Dosage: 5 MG, DAILY
     Route: 064
     Dates: start: 20170313
  40. INSULIN LISPRO [Suspect]
     Active Substance: INSULIN LISPRO
     Dosage: 7 UG/M2, DAILY
     Route: 064
     Dates: start: 20170224
  41. METFORMIN HYDROCHLORIDE. [Suspect]
     Active Substance: METFORMIN HYDROCHLORIDE
     Indication: TYPE 2 DIABETES MELLITUS
     Dosage: 1700 MG, DAILY
     Route: 064
     Dates: start: 20160930, end: 20170224
  42. FUROSEMIDE. [Suspect]
     Active Substance: FUROSEMIDE
     Dosage: 50 MG, UNK
     Route: 064
  43. FERROUS SULFATE. [Suspect]
     Active Substance: FERROUS SULFATE
     Dosage: 1 DF, DAILY
     Route: 064
     Dates: start: 20170313
  44. METFORMIN HCL [Suspect]
     Active Substance: METFORMIN HYDROCHLORIDE
     Dosage: 850 MG, QD
     Route: 064
     Dates: start: 20170224
  45. LASIX [Suspect]
     Active Substance: FUROSEMIDE
     Indication: HYPERTENSION
     Dosage: 50 MG, UNK
     Route: 064
     Dates: start: 201705
  46. GLICLAZIDE [Suspect]
     Active Substance: GLICLAZIDE
     Indication: TYPE 2 DIABETES MELLITUS
     Dosage: 120 MG, DAILY
     Route: 064
     Dates: start: 20160930, end: 20170224
  47. TARDYFERON [Suspect]
     Active Substance: FERROUS SULFATE
     Indication: NORMOCHROMIC NORMOCYTIC ANAEMIA
     Dosage: 1 DF, 1X/DAY
     Route: 064
     Dates: start: 20170313
  48. LOXEN (NICARDIPINE HYDROCHLORIDE) [Suspect]
     Active Substance: NICARDIPINE HYDROCHLORIDE
     Dosage: UNK
     Route: 064
     Dates: start: 20170516
  49. DIFFU?K [Suspect]
     Active Substance: POTASSIUM CHLORIDE
     Dosage: 1200 MG, DAILY (QD)
     Route: 064
     Dates: start: 20170804
  50. POTASSIUM CHLORIDE. [Suspect]
     Active Substance: POTASSIUM CHLORIDE
     Indication: HYPOKALAEMIA
     Dosage: 3600 MG, DAILY
     Route: 064
     Dates: start: 20170804
  51. PROPRANOLOL HYDROCHLORIDE. [Suspect]
     Active Substance: PROPRANOLOL HYDROCHLORIDE
     Indication: HYPERTENSION
     Dosage: 80 MG, 1X/DAY
     Route: 064
     Dates: start: 20170516
  52. FERROUS SULFATE. [Suspect]
     Active Substance: FERROUS SULFATE
     Indication: NORMOCHROMIC NORMOCYTIC ANAEMIA
     Dosage: 1 DF, DAILY
     Route: 064
     Dates: start: 20170313, end: 20170914
  53. METFORMIN HCL [Suspect]
     Active Substance: METFORMIN HYDROCHLORIDE
     Dosage: 850 MG, DAILY
     Route: 064
     Dates: start: 20160930, end: 20170224
  54. GABAPENTIN. [Suspect]
     Active Substance: GABAPENTIN
     Dosage: 400 MG, QD
     Route: 064
     Dates: start: 20160930
  55. INSULINE [Suspect]
     Active Substance: INSULIN NOS
     Indication: TYPE 2 DIABETES MELLITUS
     Dosage: UNK
     Route: 064
     Dates: start: 20160930, end: 20170224
  56. ARIPIPRAZOLE. [Suspect]
     Active Substance: ARIPIPRAZOLE
     Indication: BIPOLAR I DISORDER
     Dosage: 10 MG, DAILY
     Route: 064
     Dates: start: 20160930, end: 20170224
  57. GLICLAZIDE [Suspect]
     Active Substance: GLICLAZIDE
     Dosage: UNK
     Route: 064
  58. TRAMADOL HCL [Suspect]
     Active Substance: TRAMADOL HYDROCHLORIDE
     Dosage: 100 MG, 1X/DAY
     Route: 064
     Dates: start: 20160930, end: 20170306
  59. HUMALOG [Suspect]
     Active Substance: INSULIN LISPRO
     Indication: TYPE 2 DIABETES MELLITUS
     Dosage: 21 UG/M2, 1X/DAY
     Route: 064
     Dates: start: 20170224, end: 20170224
  60. LARGACTIL LEIRAS [CHLORPROMAZINE HYDROCHLORIDE] [Suspect]
     Active Substance: CHLORPROMAZINE HYDROCHLORIDE
     Indication: BIPOLAR I DISORDER
     Dosage: 25 MG, DAILY
     Route: 064
     Dates: start: 20170720
  61. AMOXICILLIN. [Suspect]
     Active Substance: AMOXICILLIN
     Dosage: 3 G, 1X/DAY
     Route: 064
     Dates: start: 20170804, end: 20170804
  62. MACROGOL 4000 [Suspect]
     Active Substance: POLYETHYLENE GLYCOL 4000
     Dosage: 120 MG, DAILY
     Route: 064
     Dates: start: 20160930, end: 20170224
  63. NICARDIPINE [Suspect]
     Active Substance: NICARDIPINE
     Dosage: UNK
     Route: 064
  64. RAMIPRIL. [Suspect]
     Active Substance: RAMIPRIL
     Indication: HYPERTENSION
     Dosage: 2.5 MG, 1X/DAY(21 WEEKS 1 DAY)
     Route: 064
     Dates: start: 20160930, end: 20170224
  65. METFORMIN HCL [Suspect]
     Active Substance: METFORMIN HYDROCHLORIDE
     Dosage: 1700 MG, DAILY
     Route: 064
     Dates: start: 20170804
  66. AMOXICILLIN SODIUM [Suspect]
     Active Substance: AMOXICILLIN SODIUM
     Dosage: 3 G, DAILY
     Route: 064
     Dates: start: 20170804, end: 20170804
  67. FORLAX [Suspect]
     Active Substance: POLYETHYLENE GLYCOL 4000
     Indication: CONSTIPATION
     Dosage: 1 DF, 1X/DAY
     Route: 064
     Dates: start: 20160930, end: 20170405
  68. CHLORHYDRATE DE PROPRANOLOL [Suspect]
     Active Substance: PROPRANOLOL HYDROCHLORIDE
     Indication: HYPERTENSION
     Dosage: 80 MG, DAILY
     Route: 064
     Dates: start: 20170516
  69. ACIDE FOLIQUE [Suspect]
     Active Substance: FOLIC ACID
     Dosage: UNK
  70. FOLIC ACID. [Suspect]
     Active Substance: FOLIC ACID
     Dosage: 5 MG, 1X/DAY
     Route: 064
     Dates: start: 20170224, end: 20170313
  71. FOLIC ACID. [Suspect]
     Active Substance: FOLIC ACID
     Dosage: 5 MG, 1X/DAY
     Route: 064
     Dates: start: 20170313, end: 20170914
  72. POTASSIUM CHLORIDE. [Suspect]
     Active Substance: POTASSIUM CHLORIDE
     Dosage: 1200 MG, DAILY(2 TO 3 TIMES PER DAY)
     Route: 064
     Dates: start: 20170804
  73. FUROSEMIDE. [Suspect]
     Active Substance: FUROSEMIDE
     Indication: HYPERTENSION
     Dosage: 40 MG, UNK
     Route: 064
     Dates: start: 20170516
  74. MACROGOL 4000 [Suspect]
     Active Substance: POLYETHYLENE GLYCOL 4000
     Indication: CONSTIPATION
     Dosage: 1 DF, DAILY (QD) (BIOGARAN)
     Route: 064
     Dates: start: 20160930, end: 20170405
  75. NICARDIPINE [Suspect]
     Active Substance: NICARDIPINE
     Indication: HYPERTENSION
     Dosage: 50 MG, 2X/DAY(50MG FORM LP X2/DAY)
     Route: 064
     Dates: start: 20170313, end: 20170405
  76. NICARDIPINE [Suspect]
     Active Substance: NICARDIPINE
     Dosage: 50 MG, QD
     Route: 064
     Dates: start: 20170405
  77. INSULINE [Suspect]
     Active Substance: INSULIN NOS
     Dosage: UNK
  78. LOXEN L P [Suspect]
     Active Substance: NICARDIPINE HYDROCHLORIDE
     Dosage: UNK
     Route: 064
     Dates: start: 20170313, end: 20170405
  79. AMOXICILLIN SODIUM [Suspect]
     Active Substance: AMOXICILLIN SODIUM
     Dosage: 3 G, 1X/DAY
     Route: 064
     Dates: start: 20170804, end: 20170811
  80. LARGACTIL LEIRAS [CHLORPROMAZINE HYDROCHLORIDE] [Suspect]
     Active Substance: CHLORPROMAZINE HYDROCHLORIDE
     Indication: HYPERTENSION
     Dosage: 25 MG, DAILY
     Route: 064
  81. FOLINIC ACID [Suspect]
     Active Substance: LEUCOVORIN
     Indication: NORMOCHROMIC NORMOCYTIC ANAEMIA
     Dosage: 5 MG, DAILY
     Route: 064
     Dates: start: 20170224, end: 20170313
  82. TRAMADOL HYDROCHLORIDE. [Suspect]
     Active Substance: TRAMADOL HYDROCHLORIDE
     Dosage: 50 MG, DAILY
     Route: 064
     Dates: start: 20160930, end: 20170306
  83. NICOTINE. [Suspect]
     Active Substance: NICOTINE
     Indication: EX-TOBACCO USER
     Dosage: 7 MG, DAILY
     Route: 064
     Dates: start: 20170224, end: 20170516
  84. METFORMIN HYDROCHLORIDE. [Suspect]
     Active Substance: METFORMIN HYDROCHLORIDE
     Dosage: 1700 MG, DAILY
     Route: 064
     Dates: start: 20170804
  85. AMOXICILLIN. [Suspect]
     Active Substance: AMOXICILLIN
     Dosage: 3 G, 1X/DAY
     Route: 064
     Dates: start: 20170804, end: 20170914
  86. LARGACTIL [CHLORPROMAZINE] [Suspect]
     Active Substance: CHLORPROMAZINE
     Dosage: 0.5 DF, UNK
     Route: 064
  87. GABAPENTINE ARROW [Suspect]
     Active Substance: GABAPENTIN
     Indication: DIABETIC NEUROPATHY
     Dosage: 400 MG, 1X/DAY
     Route: 064
     Dates: start: 20160930
  88. METFORMIN HCL [Suspect]
     Active Substance: METFORMIN HYDROCHLORIDE
     Indication: TYPE 2 DIABETES MELLITUS
     Dosage: 1700 MG, QD
     Route: 064
     Dates: start: 20160930, end: 20170224
  89. CALCIUM FOLINATE [Suspect]
     Active Substance: LEUCOVORIN CALCIUM
     Indication: NORMOCHROMIC NORMOCYTIC ANAEMIA
     Dosage: 5 MG, QD
     Route: 064
     Dates: start: 20170224, end: 20170313
  90. NICOPATCH [Suspect]
     Active Substance: NICOTINE
     Indication: EX-TOBACCO USER
     Dosage: 7 MG, DAILY
     Route: 064
     Dates: start: 20170224, end: 20170516
  91. FORLAX [Suspect]
     Active Substance: POLYETHYLENE GLYCOL 4000
     Indication: TYPE 2 DIABETES MELLITUS
     Dosage: 120 MG, DAILY
     Route: 064
     Dates: start: 20160930, end: 20170224
  92. FORLAX [Suspect]
     Active Substance: POLYETHYLENE GLYCOL 4000
     Dosage: UNK
     Route: 064
  93. LAROXYL [Suspect]
     Active Substance: AMITRIPTYLINE HYDROCHLORIDE
     Indication: DIABETIC NEUROPATHY
     Dosage: 2 DF, DAILY
     Route: 064
     Dates: start: 20160930
  94. METFORMIN HYDROCHLORIDE. [Suspect]
     Active Substance: METFORMIN HYDROCHLORIDE
     Dosage: 850 MG, 1X/DAY
     Route: 064
     Dates: start: 20160930, end: 20170224
  95. FOLIC ACID. [Suspect]
     Active Substance: FOLIC ACID
     Indication: NORMOCHROMIC NORMOCYTIC ANAEMIA
     Dosage: 5 MG, DAILY
     Route: 064
     Dates: start: 20170224, end: 20170914
  96. NICARDIPINE [Suspect]
     Active Substance: NICARDIPINE
     Dosage: UNK
     Route: 064

REACTIONS (5)
  - Maternal exposure during pregnancy [Unknown]
  - Neutropenia neonatal [Not Recovered/Not Resolved]
  - Low birth weight baby [Unknown]
  - Premature baby [Not Recovered/Not Resolved]
  - Foetal disorder [Unknown]

NARRATIVE: CASE EVENT DATE: 20170804
